FAERS Safety Report 9757498 (Version 2)
Quarter: 2014Q1

REPORT INFORMATION
  Report Type: Spontaneous
  Country: TW (occurrence: TW)
  Receive Date: 20131215
  Receipt Date: 20140102
  Transmission Date: 20141002
  Serious: Yes (Death, Hospitalization)
  Sender: FDA-Public Use
  Company Number: TW-PFIZER INC-2013355639

PATIENT
  Age: 59 Year
  Sex: Female

DRUGS (22)
  1. LEVOFLOXACIN [Suspect]
     Indication: INFECTION
     Dosage: 500 MG, 1.5 TABLETS DAILY
     Route: 048
     Dates: start: 20131109
  2. VANCOMYCIN [Suspect]
     Indication: INFECTION
     Dosage: 1000 MG, UNK, IVD
     Route: 042
     Dates: start: 20131101, end: 20131101
  3. VANCOMYCIN [Suspect]
     Dosage: 1 G, 3X/DAY
     Dates: start: 20131102, end: 20131108
  4. CRAVIT [Suspect]
     Indication: INFECTION
     Dosage: 750 MG, SINGLE
     Route: 041
     Dates: start: 20131101, end: 20131101
  5. CRAVIT [Suspect]
     Dosage: 500MG, 1 VIAL/QOD
     Route: 041
     Dates: start: 20131102, end: 20131108
  6. ALLEGRA [Concomitant]
     Dosage: UNK
     Dates: start: 20131102
  7. ALLEGRA [Concomitant]
     Dosage: UNK
     Dates: start: 20131115
  8. BOKEY [Concomitant]
     Dosage: UNK
     Dates: start: 20131107
  9. ELTROXIN [Concomitant]
     Dosage: UNK
     Dates: start: 20131101
  10. EURODIN [Concomitant]
     Dosage: UNK
     Dates: start: 20131101
  11. FOLIC ACID [Concomitant]
     Dosage: UNK
     Dates: start: 20131101
  12. ISOSORBIDE MONONITRATE [Concomitant]
     Dosage: UNK
     Dates: start: 20131101
  13. VITAMIN B COMPLEX [Concomitant]
     Dosage: UNK
     Dates: start: 20131101
  14. MOSAPRIDE CITRATE [Concomitant]
     Dosage: UNK
     Dates: start: 20131101
  15. PREDNISOLONE [Concomitant]
     Dosage: UNK
     Dates: start: 20131107
  16. PREDNISOLONE [Concomitant]
     Dosage: UNK
     Dates: start: 20131115
  17. SIMETHICONE [Concomitant]
     Dosage: UNK
     Dates: start: 20131102
  18. SENNOSIDES [Concomitant]
     Dosage: UNK
     Dates: start: 20131102
  19. ACETAMINOPHEN [Concomitant]
     Dosage: UNK
     Dates: start: 20131115
  20. PANACAL [Concomitant]
     Dosage: UNK
     Dates: start: 20131115
  21. CHLORPHENIRAMINE [Concomitant]
     Dosage: UNK
     Dates: start: 20131102
  22. CHLORPHENIRAMINE [Concomitant]
     Dosage: UNK
     Dates: start: 20131115

REACTIONS (6)
  - Multi-organ failure [Fatal]
  - Toxic epidermal necrolysis [Fatal]
  - Pyrexia [Unknown]
  - Chills [Unknown]
  - Pruritus [Unknown]
  - Rash [Unknown]
